FAERS Safety Report 8538547-9 (Version None)
Quarter: 2012Q3

REPORT INFORMATION
  Report Type: 
  Country: None (occurrence: None)
  Receive Date: 20120718
  Receipt Date: 20120718
  Transmission Date: 20120928
  Serious: Yes (Hospitalization)
  Sender: FDA-Public Use
  Company Number: None

PATIENT
  Sex: Male
  Weight: 0.9072 kg

DRUGS (1)
  1. GABAPENTIN [Suspect]
     Indication: BACK PAIN
     Dosage: 1 TAB. 3X DAY WEEK BEFORE ; 2 TABS 3X DAY APRIL 14; - APRIL 16
     Dates: start: 20120414, end: 20120416

REACTIONS (1)
  - DIPLOPIA [None]
